FAERS Safety Report 18355609 (Version 3)
Quarter: 2025Q1

REPORT INFORMATION
  Report Type: Spontaneous
  Country: JP (occurrence: JP)
  Receive Date: 20201007
  Receipt Date: 20250117
  Transmission Date: 20250409
  Serious: Yes (Other)
  Sender: SUNOVION
  Company Number: JP-DSPHARMA-2020DSP012160

PATIENT

DRUGS (33)
  1. LATUDA [Interacting]
     Active Substance: LURASIDONE HYDROCHLORIDE
     Indication: Product used for unknown indication
     Dosage: 20 MG, QD
     Route: 048
     Dates: start: 20200910, end: 20200923
  2. HALOPERIDOL [Interacting]
     Active Substance: HALOPERIDOL
     Indication: Product used for unknown indication
     Dosage: 3 MG, QD
     Route: 048
  3. HALOPERIDOL [Interacting]
     Active Substance: HALOPERIDOL
     Route: 048
  4. HALOPERIDOL [Interacting]
     Active Substance: HALOPERIDOL
     Indication: Product used for unknown indication
     Dosage: 12 MG, QD
     Route: 048
     Dates: end: 20200903
  5. HALOPERIDOL [Interacting]
     Active Substance: HALOPERIDOL
     Dosage: 9 MG, QD
     Route: 048
     Dates: start: 20200904, end: 20200924
  6. HALOPERIDOL [Interacting]
     Active Substance: HALOPERIDOL
     Dosage: 11 MG, QD
     Route: 048
     Dates: start: 20200925, end: 20201001
  7. HALOPERIDOL [Interacting]
     Active Substance: HALOPERIDOL
     Dosage: 10 MG, QD
     Route: 048
     Dates: start: 20201002, end: 20201008
  8. HALOPERIDOL [Interacting]
     Active Substance: HALOPERIDOL
     Dosage: 9 MG, QD
     Route: 048
     Dates: start: 20201009
  9. BIPERIDEN HYDROCHLORIDE [Interacting]
     Active Substance: BIPERIDEN HYDROCHLORIDE
     Indication: Product used for unknown indication
     Dosage: 3 MG, QD
     Route: 048
     Dates: end: 20201015
  10. BIPERIDEN HYDROCHLORIDE [Interacting]
     Active Substance: BIPERIDEN HYDROCHLORIDE
     Dosage: 2.5 MG, QD
     Route: 048
     Dates: start: 20201016, end: 20201022
  11. BIPERIDEN HYDROCHLORIDE [Interacting]
     Active Substance: BIPERIDEN HYDROCHLORIDE
     Dosage: 2 MG, QD
     Route: 048
     Dates: start: 20201023, end: 20201029
  12. BIPERIDEN HYDROCHLORIDE [Interacting]
     Active Substance: BIPERIDEN HYDROCHLORIDE
     Dosage: 1.5 MG, QD
     Route: 048
     Dates: start: 20201030
  13. LEVOMEPROMAZINE [Interacting]
     Active Substance: LEVOMEPROMAZINE
     Indication: Product used for unknown indication
     Dosage: 50 MG, HS
     Route: 048
  14. ZOPICLONE [Concomitant]
     Active Substance: ZOPICLONE
     Dosage: 7.5 MG, HS
     Route: 048
  15. HERBALS [Concomitant]
     Active Substance: HERBALS
     Dosage: 1 DF, QID
     Route: 048
     Dates: end: 20200922
  16. ROCALTROL [Concomitant]
     Active Substance: CALCITRIOL
     Dosage: 0.25 ?G, BID
     Route: 048
  17. VALPROATE SODIUM [Concomitant]
     Active Substance: VALPROATE SODIUM
     Dosage: 500 MG, HS
     Route: 048
     Dates: end: 20201001
  18. VALPROATE SODIUM [Concomitant]
     Active Substance: VALPROATE SODIUM
     Dosage: 400 MG, HS
     Route: 048
     Dates: start: 20201002
  19. MAGNESIUM OXIDE [Concomitant]
     Active Substance: MAGNESIUM OXIDE
     Dosage: 330 MG, TID
     Route: 048
     Dates: end: 20200917
  20. MAGNESIUM OXIDE [Concomitant]
     Active Substance: MAGNESIUM OXIDE
     Dosage: 330 MG, BID
     Route: 048
     Dates: start: 20200918, end: 20200918
  21. MAGNESIUM OXIDE [Concomitant]
     Active Substance: MAGNESIUM OXIDE
     Dosage: 330 MG, BID
     Route: 048
     Dates: start: 20200926, end: 20201001
  22. KETOPROFEN [Concomitant]
     Active Substance: KETOPROFEN
     Route: 062
     Dates: start: 20200902
  23. QUETIAPINE [Concomitant]
     Active Substance: QUETIAPINE
     Dosage: 50 MG, BID
     Route: 048
     Dates: start: 20200904, end: 20200909
  24. SODIUM PICOSULFATE [Concomitant]
     Active Substance: SODIUM PICOSULFATE
     Route: 048
     Dates: start: 20200917
  25. CALONAL [Concomitant]
     Active Substance: ACETAMINOPHEN
     Route: 048
     Dates: start: 20200921
  26. GLYCERIN [Concomitant]
     Active Substance: GLYCERIN
     Dosage: 60 G, QD
     Route: 054
     Dates: start: 20200923, end: 20200924
  27. GLYCERIN [Concomitant]
     Active Substance: GLYCERIN
     Dosage: 60 G, QD
     Route: 054
     Dates: start: 20200928, end: 20200928
  28. GLYCERIN [Concomitant]
     Active Substance: GLYCERIN
     Dosage: 60 G, QD
     Route: 054
     Dates: start: 20201009
  29. GLYCERIN [Concomitant]
     Active Substance: GLYCERIN
     Dosage: 60 G, QD
     Route: 054
     Dates: start: 20201012
  30. TAMSULOSIN HYDROCHLORIDE [Concomitant]
     Active Substance: TAMSULOSIN HYDROCHLORIDE
     Dosage: 0.2 MG, QD
     Route: 048
     Dates: start: 20200924, end: 20201001
  31. DISTIGMINE BROMIDE [Concomitant]
     Active Substance: DISTIGMINE BROMIDE
     Dosage: 5 MG, QD
     Route: 048
     Dates: start: 20201001
  32. URAPIDIL [Concomitant]
     Active Substance: URAPIDIL
     Dosage: 15 MG, BID
     Route: 048
     Dates: start: 20201002, end: 20201029
  33. ZINC OXIDE [Concomitant]
     Active Substance: ZINC OXIDE
     Route: 003
     Dates: start: 20201012

REACTIONS (3)
  - Urinary retention [Recovered/Resolved]
  - Drug interaction [Recovered/Resolved]
  - Prescribed underdose [Unknown]

NARRATIVE: CASE EVENT DATE: 20200922
